FAERS Safety Report 8871595 (Version 2)
Quarter: 2012Q4

REPORT INFORMATION
  Report Type: Spontaneous
  Country: US (occurrence: None)
  Receive Date: 20121025
  Receipt Date: 20121214
  Transmission Date: 20130627
  Serious: Yes (Death, Hospitalization, Other)
  Sender: FDA-Public Use
  Company Number: DSA_59604_2012

PATIENT
  Sex: Female

DRUGS (4)
  1. XENAZINE 25 MG (NOT SPECIFIED) [Suspect]
     Indication: MOVEMENT DISORDER
     Route: 048
     Dates: start: 20120913
  2. XENAZINE 25 MG (NOT SPECIFIED) [Suspect]
     Indication: MOVEMENT DISORDER
     Route: 048
     Dates: start: 20120423, end: 20120528
  3. XENAZINE 25 MG (NOT SPECIFIED) [Suspect]
     Indication: MOVEMENT DISORDER
     Dosage: IN THE am, 12.5 MG IN THE PM)
     Route: 048
     Dates: start: 20120529, end: 20120912
  4. XENAZINE 25 MG (NOT SPECIFIED) [Suspect]
     Indication: MOVEMENT DISORDER
     Route: 048

REACTIONS (4)
  - Depression [None]
  - Anxiety [None]
  - Gait disturbance [None]
  - Urinary tract infection [None]
